FAERS Safety Report 6809429-5 (Version None)
Quarter: 2010Q2

REPORT INFORMATION
  Report Type: 
  Country: None (occurrence: None)
  Receive Date: 20100630
  Receipt Date: 20100621
  Transmission Date: 20101027
  Serious: Yes (Other)
  Sender: FDA-Public Use
  Company Number: ES-ASTRAZENECA-2010SE29044

PATIENT
  Age: 71 Year
  Sex: Female

DRUGS (6)
  1. CRESTOR [Suspect]
     Indication: HYPERCHOLESTEROLAEMIA
     Route: 048
     Dates: start: 20100209, end: 20100405
  2. PRAVASTATINA STADA [Interacting]
     Route: 065
     Dates: start: 19970101, end: 20100404
  3. DATOLAN [Concomitant]
     Route: 048
     Dates: start: 20000101
  4. EMCONCOR [Concomitant]
     Indication: MYOCARDIAL INFARCTION
     Route: 048
     Dates: start: 19970101
  5. URBAL [Concomitant]
     Dates: start: 20000101
  6. SINTROM [Concomitant]
     Route: 048
     Dates: start: 19970101

REACTIONS (2)
  - DRUG INTERACTION [None]
  - VULVOVAGINAL PAIN [None]
